FAERS Safety Report 5319021-X (Version None)
Quarter: 2007Q2

REPORT INFORMATION
  Report Type: 
  Country: None (occurrence: None)
  Receive Date: 20070508
  Receipt Date: 20070426
  Transmission Date: 20071010
  Serious: Yes (Other)
  Sender: FDA-Public Use
  Company Number: JP-ROCHE-488621

PATIENT
  Age: 57 Year
  Sex: Female
  Weight: 73 kg

DRUGS (9)
  1. TAMIFLU [Suspect]
     Indication: INFLUENZA
     Route: 048
     Dates: start: 20070224, end: 20070226
  2. BLOPRESS [Concomitant]
     Dosage: DRUG GENERIC NAME REPORTED AS: CANDESARTAN CILEXETIL
     Route: 048
     Dates: start: 20010801
  3. LIPOVAS [Concomitant]
     Route: 048
     Dates: start: 20010801
  4. TICLOPIDINE HCL [Concomitant]
     Route: 048
     Dates: start: 20010801
  5. RESTAMIN [Concomitant]
     Dosage: DRUG GENERIC NAME REPORTED AS: DIPHENHYDRAMINE HYDROCHLORIDE
     Route: 048
     Dates: start: 20070224, end: 20070226
  6. ASVERIN [Concomitant]
     Dosage: DRUG GENERIC NAME REPORTED AS: TIPEPIDINE HIBENZATE
     Route: 048
     Dates: start: 20070224, end: 20070226
  7. CISDYNE [Concomitant]
     Route: 048
     Dates: start: 20070224, end: 20070226
  8. MUCOSOLATE [Concomitant]
     Dosage: DRUG GENERIC NAME REPORTED AS: AMBROXAL HYDROCHLORIDE
     Route: 048
     Dates: start: 20070224, end: 20070226
  9. COCARL [Concomitant]
     Dosage: DRUG GENERIC NAME REPORTED AS ACETAMINOPHEN
     Route: 048

REACTIONS (1)
  - ENTEROCOLITIS HAEMORRHAGIC [None]
